FAERS Safety Report 4752886-9 (Version None)
Quarter: 2005Q3

REPORT INFORMATION
  Report Type: 
  Country: None (occurrence: None)
  Receive Date: 20050714
  Receipt Date: 20050505
  Transmission Date: 20060218
  Serious: Yes (Hospitalization)
  Sender: FDA-Public Use
  Company Number: 200513932US

PATIENT
  Age: 44 Year
  Sex: Female

DRUGS (6)
  1. TAXOTERE [Suspect]
     Indication: BREAST CANCER
     Dosage: 150 MG
     Dates: start: 20050502, end: 20050502
  2. CYTOXAN [Suspect]
     Dosage: 1200 MG
     Dates: start: 20050502, end: 20050502
  3. PREMEDICATION NOS [Suspect]
     Dates: start: 20050502, end: 20050502
  4. DECADRON [Suspect]
     Dosage: PO
     Route: 048
  5. COMPAZINE [Suspect]
     Indication: NAUSEA
  6. COMPAZINE [Suspect]
     Indication: VOMITING

REACTIONS (2)
  - ANGIONEUROTIC OEDEMA [None]
  - HYPERSENSITIVITY [None]
